FAERS Safety Report 4820566-7 (Version None)
Quarter: 2005Q4

REPORT INFORMATION
  Report Type: 
  Country: None (occurrence: None)
  Receive Date: 20051102
  Receipt Date: 20051102
  Transmission Date: 20060501
  Serious: Yes (Hospitalization)
  Sender: FDA-Public Use
  Company Number: None

PATIENT
  Age: 66 Year
  Sex: Male

DRUGS (3)
  1. CARBAMAZEPINE [Suspect]
     Indication: CONVULSION
     Dosage: 100 MG BID INCREASED TO 200 MG BID INCREASED TO 300 MG BID
     Dates: start: 20050615, end: 20050817
  2. CARBAMAZEPINE [Suspect]
     Indication: CONVULSION
     Dosage: 100 MG BID INCREASED TO 200 MG BID INCREASED TO 300 MG BID
     Dates: start: 20050817, end: 20050818
  3. CARBAMAZEPINE [Suspect]
     Indication: CONVULSION
     Dosage: 100 MG BID INCREASED TO 200 MG BID INCREASED TO 300 MG BID
     Dates: start: 20050818, end: 20050831

REACTIONS (2)
  - DRUG LEVEL DECREASED [None]
  - INAPPROPRIATE ANTIDIURETIC HORMONE SECRETION [None]
